FAERS Safety Report 10640012 (Version 1)
Quarter: 2014Q4

REPORT INFORMATION
  Report Type: Spontaneous
  Country: US (occurrence: None)
  Receive Date: 20141208
  Receipt Date: 20141208
  Transmission Date: 20150529
  Serious: Yes (Other)
  Sender: FDA-Public Use
  Company Number: None

PATIENT
  Age: 68 Year
  Sex: Female
  Weight: 59.88 kg

DRUGS (14)
  1. MAGNESIUM [Concomitant]
     Active Substance: MAGNESIUM
  2. ALEVE [Concomitant]
     Active Substance: NAPROXEN SODIUM
  3. CENTRUM SILVER [Concomitant]
     Active Substance: VITAMINS
  4. BIOTIN [Concomitant]
     Active Substance: BIOTIN
  5. VITAMIN E [Concomitant]
     Active Substance: .ALPHA.-TOCOPHEROL
  6. VITAMIN C [Concomitant]
     Active Substance: ASCORBIC ACID
  7. MUPIROCIN. [Suspect]
     Active Substance: MUPIROCIN
     Indication: ARTHROPOD BITE
     Dosage: ON THE SKIN.
     Dates: start: 20140923, end: 20140930
  8. FISH OIL [Concomitant]
     Active Substance: FISH OIL
  9. PRID [Concomitant]
  10. MAGNESSIUM [Concomitant]
  11. POTASSIUM [Concomitant]
     Active Substance: POTASSIUM
  12. CALICUM WITH VITAMIN D [Concomitant]
  13. VITAMIN D [Concomitant]
     Active Substance: CHOLECALCIFEROL
  14. CO-Q10 [Concomitant]

REACTIONS (7)
  - Wound infection [None]
  - Vertigo [None]
  - Abdominal pain [None]
  - Application site erythema [None]
  - Dizziness [None]
  - Headache [None]
  - Application site pain [None]

NARRATIVE: CASE EVENT DATE: 20140924
